FAERS Safety Report 6164030-4 (Version None)
Quarter: 2009Q2

REPORT INFORMATION
  Report Type: 
  Country: None (occurrence: None)
  Receive Date: 20090420
  Receipt Date: 20090408
  Transmission Date: 20091009
  Serious: Yes (Death, Life-Threatening, Hospitalization)
  Sender: FDA-Public Use
  Company Number: 2009-00570

PATIENT
  Age: 51 Year
  Sex: Female
  Weight: 54 kg

DRUGS (4)
  1. VELCADE [Suspect]
     Indication: MULTIPLE MYELOMA
     Dosage: 1.3 MG/M2 UNK INTRAVENOUS
     Route: 042
     Dates: start: 20081205, end: 20090123
  2. DEXAMETHASONE 4MG TAB [Concomitant]
  3. ACYCLOVIR [Concomitant]
  4. BENDAMUSTINE (BENDAMUSTINE) [Concomitant]

REACTIONS (6)
  - CEREBRAL ATROPHY [None]
  - ENCEPHALITIS HERPES [None]
  - MENINGOENCEPHALITIS BACTERIAL [None]
  - MULTI-ORGAN FAILURE [None]
  - SEPSIS [None]
  - TREATMENT NONCOMPLIANCE [None]
